FAERS Safety Report 14770558 (Version 1)
Quarter: 2018Q2

REPORT INFORMATION
  Report Type: Spontaneous
  Country: US (occurrence: US)
  Receive Date: 20180417
  Receipt Date: 20180417
  Transmission Date: 20180711
  Serious: Yes (Hospitalization, Other)
  Sender: FDA-Public Use
  Company Number: US-BAUSCH-BL-2018-009655

PATIENT
  Age: 15 Year
  Sex: Female

DRUGS (2)
  1. ESCITALOPRAM [Concomitant]
     Active Substance: ESCITALOPRAM OXALATE
     Indication: PRODUCT USED FOR UNKNOWN INDICATION
     Dosage: 5 DAYS PRIOR TO PRESENTATION
  2. BUPROPION. [Suspect]
     Active Substance: BUPROPION
     Indication: PRODUCT USED FOR UNKNOWN INDICATION
     Dosage: EXTENDED RELEASE TABLETS, 22 TABLETS
     Route: 048

REACTIONS (5)
  - Myoclonus [Recovered/Resolved]
  - Toxicity to various agents [Unknown]
  - Prescription drug used without a prescription [Unknown]
  - Intentional overdose [Unknown]
  - Generalised tonic-clonic seizure [Unknown]
